FAERS Safety Report 13646188 (Version 3)
Quarter: 2017Q2

REPORT INFORMATION
  Report Type: Report from Study
  Country: None (occurrence: NO)
  Receive Date: 20170613
  Receipt Date: 20170629
  Transmission Date: 20170830
  Serious: Yes (Hospitalization)
  Sender: FDA-Public Use
  Company Number: NO-ABBVIE-17K-122-2004186-00

PATIENT
  Sex: Male

DRUGS (1)
  1. DUODOPA [Suspect]
     Active Substance: CARBIDOPA\LEVODOPA
     Indication: PRODUCT USED FOR UNKNOWN INDICATION
     Route: 050
     Dates: start: 201401

REACTIONS (7)
  - Prostate cancer [Unknown]
  - General physical health deterioration [Unknown]
  - Secretion discharge [Unknown]
  - Hypotonia [Unknown]
  - Stoma site haemorrhage [Recovering/Resolving]
  - Stoma site pain [Unknown]
  - Stoma site discharge [Recovering/Resolving]

NARRATIVE: CASE EVENT DATE: 201409
